FAERS Safety Report 6922042-4 (Version None)
Quarter: 2010Q3

REPORT INFORMATION
  Report Type: 
  Country: None (occurrence: None)
  Receive Date: 20100812
  Receipt Date: 20100805
  Transmission Date: 20110219
  Serious: Yes (Death)
  Sender: FDA-Public Use
  Company Number: CA-ALLERGAN-1010235US

PATIENT
  Age: 56 Year
  Sex: Female
  Weight: 45 kg

DRUGS (12)
  1. BOTOX [Suspect]
     Indication: PRODUCT USED FOR UNKNOWN INDICATION
     Dosage: 100 UNITS, SINGLE
     Route: 030
  2. BOTOX [Suspect]
     Dosage: 60 UNITS, SINGLE
     Route: 030
  3. ADALAT CC [Concomitant]
  4. CALCIUM [Concomitant]
  5. LITHIUM CARBONATE [Concomitant]
  6. FOLIC ACID [Concomitant]
  7. GABAPENTIN [Concomitant]
  8. LITHANE [Concomitant]
  9. NITRAZADON [Concomitant]
  10. SYNTHROID [Concomitant]
  11. SENNOSIDES [Concomitant]
  12. VALPROIC ACID [Concomitant]

REACTIONS (1)
  - BRONCHOPNEUMONIA [None]
